FAERS Safety Report 14353653 (Version 8)
Quarter: 2018Q4

REPORT INFORMATION
  Report Type: Spontaneous
  Country: US (occurrence: US)
  Receive Date: 20180105
  Receipt Date: 20181212
  Transmission Date: 20190204
  Serious: No
  Sender: FDA-Public Use
  Company Number: US-BRISTOL-MYERS SQUIBB COMPANY-BMS-2017-119729

PATIENT
  Sex: Female
  Weight: 66.21 kg

DRUGS (1)
  1. ORENCIA [Suspect]
     Active Substance: ABATACEPT
     Indication: RHEUMATOID ARTHRITIS
     Dosage: 125 MG, QWK
     Route: 058
     Dates: start: 201406

REACTIONS (6)
  - Nasopharyngitis [Unknown]
  - Head injury [Unknown]
  - Arthritis [Unknown]
  - Influenza [Unknown]
  - Constipation [Unknown]
  - Muscle spasms [Unknown]
